FAERS Safety Report 4539371-4 (Version None)
Quarter: 2004Q4

REPORT INFORMATION
  Report Type: 
  Country: None (occurrence: None)
  Receive Date: 20041222
  Receipt Date: 20041210
  Transmission Date: 20050328
  Serious: Yes (Hospitalization)
  Sender: FDA-Public Use
  Company Number: 8008078

PATIENT
  Age: 10 Year
  Sex: Female

DRUGS (7)
  1. KEPPRA [Suspect]
     Indication: CONVULSION
     Dosage: 250 MG/ D PO
     Route: 048
     Dates: start: 20041013, end: 20041015
  2. KEPPRA [Suspect]
     Indication: CONVULSION
     Dosage: 500 MG/D PO
     Route: 048
     Dates: start: 20041016, end: 20041020
  3. KEPPRA [Suspect]
     Indication: CONVULSION
     Dosage: 750 MG/D PO
     Route: 048
     Dates: start: 20041021, end: 20041022
  4. LAMICTAL [Concomitant]
  5. PHENOBARBITAL TAB [Concomitant]
  6. TRILEPTAL [Concomitant]
  7. MELATONIN [Concomitant]

REACTIONS (4)
  - C-REACTIVE PROTEIN INCREASED [None]
  - DERMATITIS ALLERGIC [None]
  - HAEMOGLOBIN DECREASED [None]
  - WHITE BLOOD CELL COUNT DECREASED [None]
